FAERS Safety Report 10687184 (Version 1)
Quarter: 2015Q1

REPORT INFORMATION
  Report Type: Spontaneous
  Country: TR (occurrence: TR)
  Receive Date: 20150102
  Receipt Date: 20150102
  Transmission Date: 20150720
  Serious: Yes (Other)
  Sender: FDA-Public Use
  Company Number: TR-ACCORD-027858

PATIENT
  Age: 76 Year
  Sex: Female

DRUGS (6)
  1. LOSARTAN [Concomitant]
     Active Substance: LOSARTAN
  2. ESCITALOPRAM [Suspect]
     Active Substance: ESCITALOPRAM OXALATE
     Indication: DEPRESSION
  3. RIVASTIGMINE/RIVASTIGMINE TARTRATE [Concomitant]
  4. TRAZODONE/TRAZODONE HYDROCHLORIDE [Concomitant]
  5. SITAGLIPTIN/SITAGLIPTIN PHOSPHATE [Concomitant]
  6. MEMANTINE/MEMANTINE HYDROCHLORIDE [Concomitant]

REACTIONS (3)
  - Depressed level of consciousness [None]
  - Hyponatraemia [Recovered/Resolved]
  - Urinary incontinence [Recovering/Resolving]
